FAERS Safety Report 20827397 (Version 1)
Quarter: 2022Q2

REPORT INFORMATION
  Report Type: Spontaneous
  Country: CA (occurrence: CA)
  Receive Date: 20220513
  Receipt Date: 20220513
  Transmission Date: 20220720
  Serious: Yes (Disabling, Other)
  Sender: FDA-Public Use
  Company Number: CA-ABBVIE-18K-028-2543105-00

PATIENT
  Age: 70 Year
  Sex: Female

DRUGS (10)
  1. HUMIRA [Suspect]
     Active Substance: ADALIMUMAB
     Indication: Rheumatoid arthritis
     Route: 058
  2. HYDROXYCHLOROQUINE [Suspect]
     Active Substance: HYDROXYCHLOROQUINE
     Indication: Product used for unknown indication
     Route: 048
  3. METHOTREXATE [Suspect]
     Active Substance: METHOTREXATE
     Indication: Rheumatoid arthritis
     Route: 048
  4. ORENCIA [Suspect]
     Active Substance: ABATACEPT
     Indication: Rheumatoid arthritis
     Route: 065
  5. SULFASALAZINE [Suspect]
     Active Substance: SULFASALAZINE
     Indication: Rheumatoid arthritis
     Route: 048
  6. SULFASALAZINE [Suspect]
     Active Substance: SULFASALAZINE
     Route: 048
  7. GOLD [Suspect]
     Active Substance: GOLD
     Indication: Rheumatoid arthritis
     Route: 065
  8. HYDROXYCHLOROQUINE SULFATE [Suspect]
     Active Substance: HYDROXYCHLOROQUINE SULFATE
     Indication: Product used for unknown indication
     Route: 048
  9. LEFLUNOMIDE [Suspect]
     Active Substance: LEFLUNOMIDE
     Indication: Product used for unknown indication
     Route: 065
  10. ENBREL [Suspect]
     Active Substance: ETANERCEPT
     Indication: Rheumatoid arthritis
     Route: 065

REACTIONS (10)
  - Drug intolerance [Not Recovered/Not Resolved]
  - Loss of personal independence in daily activities [Not Recovered/Not Resolved]
  - Drug-induced liver injury [Not Recovered/Not Resolved]
  - Mobility decreased [Not Recovered/Not Resolved]
  - Skin reaction [Not Recovered/Not Resolved]
  - Synovitis [Not Recovered/Not Resolved]
  - White blood cell count decreased [Not Recovered/Not Resolved]
  - Drug hypersensitivity [Not Recovered/Not Resolved]
  - Drug ineffective [Not Recovered/Not Resolved]
  - Contraindicated product administered [Not Recovered/Not Resolved]
